FAERS Safety Report 9816638 (Version 1)
Quarter: 2014Q1

REPORT INFORMATION
  Report Type: Spontaneous
  Country: US (occurrence: US)
  Receive Date: 20140114
  Receipt Date: 20140114
  Transmission Date: 20141002
  Serious: Yes (Death)
  Sender: FDA-Public Use
  Company Number: US-PFIZER INC-2014007465

PATIENT
  Age: 51 Year
  Sex: Female

DRUGS (2)
  1. LIDOCAINE HCL [Suspect]
     Route: 051
  2. METHYLPREDNISOLONE [Suspect]
     Dosage: UNK

REACTIONS (3)
  - Death [Fatal]
  - Cardiac arrest [Fatal]
  - Respiratory arrest [Fatal]
